FAERS Safety Report 9338692 (Version 1)
Quarter: 2013Q2

REPORT INFORMATION
  Report Type: Spontaneous
  Country: ES (occurrence: ES)
  Receive Date: 20130610
  Receipt Date: 20130610
  Transmission Date: 20140414
  Serious: Yes (Life-Threatening)
  Sender: FDA-Public Use
  Company Number: ES-ACCORD-017960

PATIENT
  Age: 40 Year
  Sex: Female
  Weight: 58 kg

DRUGS (2)
  1. PACLITAXEL [Suspect]
     Indication: BREAST CANCER
     Route: 042
     Dates: start: 20130416, end: 20130416
  2. HERCEPTIN [Concomitant]
     Indication: BREAST CANCER
     Dosage: CONTINUED
     Route: 042
     Dates: start: 20130416

REACTIONS (5)
  - Bronchospasm [Recovered/Resolved]
  - Eczema [Recovered/Resolved]
  - Erythema [Recovered/Resolved]
  - Local swelling [Recovered/Resolved]
  - Pruritus [Recovered/Resolved]
